FAERS Safety Report 5919483-0 (Version None)
Quarter: 2008Q4

REPORT INFORMATION
  Report Type: 
  Country: None (occurrence: None)
  Receive Date: 20081014
  Receipt Date: 20081014
  Transmission Date: 20090506
  Serious: Yes (Hospitalization)
  Sender: FDA-Public Use
  Company Number: None

PATIENT
  Age: 78 Year
  Sex: Female
  Weight: 97.7 kg

DRUGS (2)
  1. CEFEPIME [Suspect]
     Indication: URINARY TRACT INFECTION
     Dosage: 1GRAM Q12H IV
     Route: 042
  2. DIFLUCAN [Suspect]
     Indication: URINARY TRACT INFECTION
     Dosage: 100 MG DAILY IV
     Route: 042

REACTIONS (3)
  - CARDIAC FAILURE CONGESTIVE [None]
  - CLOSTRIDIUM DIFFICILE COLITIS [None]
  - URINARY TRACT INFECTION [None]
